FAERS Safety Report 9224590 (Version 1)
Quarter: 2013Q2

REPORT INFORMATION
  Report Type: Spontaneous
  Country: GB (occurrence: None)
  Receive Date: 20130409
  Receipt Date: 20130409
  Transmission Date: 20140414
  Serious: Yes (Death)
  Sender: FDA-Public Use
  Company Number: E2B_00000711

PATIENT
  Age: 69 Year
  Sex: Male
  Weight: 77 kg

DRUGS (1)
  1. SIMVASTATIN [Suspect]
     Indication: PRODUCT USED FOR UNKNOWN INDICATION
     Route: 048
     Dates: start: 2011, end: 20130304

REACTIONS (17)
  - Pyrexia [None]
  - C-reactive protein increased [None]
  - Blood potassium increased [None]
  - Blood creatinine increased [None]
  - Blood urea increased [None]
  - Blood bilirubin increased [None]
  - Blood albumin decreased [None]
  - Alanine aminotransferase increased [None]
  - Blood alkaline phosphatase increased [None]
  - Blood calcium decreased [None]
  - Protein total decreased [None]
  - White blood cell count increased [None]
  - Blood pH decreased [None]
  - PCO2 decreased [None]
  - PO2 increased [None]
  - Haemoglobin decreased [None]
  - Fibrin D dimer increased [None]
